FAERS Safety Report 4284706-3 (Version None)
Quarter: 2004Q1

REPORT INFORMATION
  Report Type: 
  Country: None (occurrence: None)
  Receive Date: 20040130
  Receipt Date: 20040120
  Transmission Date: 20041129
  Serious: Yes (Hospitalization)
  Sender: FDA-Public Use
  Company Number: 2003121316

PATIENT
  Age: 74 Year
  Sex: Female

DRUGS (9)
  1. NEURONTIN [Suspect]
     Indication: PAIN IN EXTREMITY
     Dosage: 300 MG (TID), ORAL
     Route: 048
     Dates: start: 19990601
  2. TRIMETAZIDINE HYDROCHLORIDE (TRIMETAZIDINE HYDROCHLORIDE) [Concomitant]
  3. TRIMEBUTINE (TRIMEBUTINE) [Concomitant]
  4. DOMPERIDONE (DOMPERIDONE) [Concomitant]
  5. LISINOPRIL [Concomitant]
  6. MILNACIPRAN (MILNACIPRAN) [Concomitant]
  7. LORMETAZEPAM (LORMETAZEPAM) [Concomitant]
  8. AMITRIPTYLINE HYDROCHLORIDE [Concomitant]
  9. CLONAZEPAM [Concomitant]

REACTIONS (6)
  - BILIARY DILATATION [None]
  - CYTOLYTIC HEPATITIS [None]
  - DRUG INTERACTION [None]
  - HEPATITIS CHOLESTATIC [None]
  - PSYCHOTIC DISORDER [None]
  - TREATMENT NONCOMPLIANCE [None]
